FAERS Safety Report 18606673 (Version 1)
Quarter: 2020Q4

REPORT INFORMATION
  Report Type: Spontaneous
  Country: DE (occurrence: DE)
  Receive Date: 20201211
  Receipt Date: 20201211
  Transmission Date: 20210114
  Serious: Yes (Other)
  Sender: FDA-Public Use
  Company Number: DE-BIOGEN-2020BI00946263

PATIENT
  Age: 25 Year
  Sex: Female

DRUGS (5)
  1. FEMAFORM [Concomitant]
     Indication: PRODUCT USED FOR UNKNOWN INDICATION
     Route: 065
     Dates: start: 20170215
  2. PANTOPRAZOL [Concomitant]
     Active Substance: PANTOPRAZOLE SODIUM
     Indication: PRODUCT USED FOR UNKNOWN INDICATION
     Route: 065
     Dates: start: 20170707, end: 20170710
  3. VITAMIN D [Concomitant]
     Active Substance: VITAMIN D NOS
     Indication: PROPHYLAXIS
     Route: 065
     Dates: start: 20150615
  4. TYSABRI [Suspect]
     Active Substance: NATALIZUMAB
     Indication: RELAPSING-REMITTING MULTIPLE SCLEROSIS
     Route: 042
     Dates: start: 20170115, end: 20170115
  5. MAGENSIUM [Concomitant]
     Indication: PROPHYLAXIS
     Route: 065
     Dates: start: 20150615

REACTIONS (5)
  - Maternal exposure during pregnancy [Recovered/Resolved]
  - Oedema [Unknown]
  - Symphysiolysis [Unknown]
  - Multiple sclerosis relapse [Unknown]
  - Caesarean section [Recovered/Resolved]

NARRATIVE: CASE EVENT DATE: 20170707
